FAERS Safety Report 16877764 (Version 1)
Quarter: 2019Q4

REPORT INFORMATION
  Report Type: Spontaneous
  Country: US (occurrence: US)
  Receive Date: 20191002
  Receipt Date: 20191002
  Transmission Date: 20200122
  Serious: Yes (Hospitalization)
  Sender: FDA-Public Use
  Company Number: None

PATIENT
  Age: 62 Year
  Sex: Male

DRUGS (8)
  1. ENBREL [Suspect]
     Active Substance: ETANERCEPT
     Indication: PSORIATIC ARTHROPATHY
     Dosage: ?          OTHER FREQUENCY:WEEKLY;?
     Route: 058
     Dates: start: 20171114
  2. ALLOPURINOL TAB 300 MG [Concomitant]
  3. ATORVASTATIN TAB 80 MG [Concomitant]
  4. FLECIANIDE TAB 100 MG [Concomitant]
  5. NITROGLYCERN SUB 0.4 MG [Concomitant]
  6. CITALOPRAM TAB 10 MG [Concomitant]
  7. LOSATAN/HCT TAB 100-25 [Concomitant]
  8. CLOBETASOL CRE 0.05% [Concomitant]

REACTIONS (1)
  - Surgery [None]

NARRATIVE: CASE EVENT DATE: 20190913
